FAERS Safety Report 6423718-8 (Version None)
Quarter: 2009Q4

REPORT INFORMATION
  Report Type: 
  Country: None (occurrence: None)
  Receive Date: 20091030
  Receipt Date: 20091030
  Transmission Date: 20100525
  Serious: No
  Sender: FDA-Public Use
  Company Number: None

PATIENT
  Age: 57 Year
  Sex: Male
  Weight: 101.95 kg

DRUGS (1)
  1. LINEZOLID [Suspect]
     Dosage: 600 MG BID IV
     Route: 042
     Dates: start: 20090130, end: 20090209

REACTIONS (1)
  - THROMBOCYTOPENIA [None]
